FAERS Safety Report 8492584-1 (Version None)
Quarter: 2012Q3

REPORT INFORMATION
  Report Type: 
  Country: None (occurrence: None)
  Receive Date: 20120706
  Receipt Date: 20120627
  Transmission Date: 20120928
  Serious: Yes (Hospitalization)
  Sender: FDA-Public Use
  Company Number: US-ASTRAZENECA-2010SE38390

PATIENT
  Age: 51 Year
  Sex: Female

DRUGS (2)
  1. PEPCID [Concomitant]
  2. NEXIUM [Suspect]
     Route: 048

REACTIONS (8)
  - DYSPEPSIA [None]
  - ABDOMINAL PAIN UPPER [None]
  - REGURGITATION [None]
  - ABDOMINAL DISCOMFORT [None]
  - DRUG DOSE OMISSION [None]
  - OESOPHAGEAL PAIN [None]
  - INSOMNIA [None]
  - MALAISE [None]
